FAERS Safety Report 10062886 (Version 1)
Quarter: 2014Q1

REPORT INFORMATION
  Report Type: Spontaneous
  Country: US (occurrence: None)
  Receive Date: 20140328
  Receipt Date: 20140328
  Transmission Date: 20141002
  Serious: No
  Sender: FDA-Public Use
  Company Number: 1000054601

PATIENT
  Age: 79 Year
  Sex: Female

DRUGS (4)
  1. LINZESS [Suspect]
     Indication: CONSTIPATION
     Dates: start: 20140221, end: 20140223
  2. LISINOPRIL(LISINOPRIL)(LISINOPRIL) [Concomitant]
  3. AMLODIPINE(AMLODIPINE)(AMLODIPINE) [Concomitant]
  4. LORAZEPAM(LORAZEPAM) [Concomitant]

REACTIONS (4)
  - Muscular weakness [None]
  - Chest discomfort [None]
  - Sensation of pressure [None]
  - Dysgeusia [None]
